FAERS Safety Report 20594275 (Version 1)
Quarter: 2022Q1

REPORT INFORMATION
  Report Type: Spontaneous
  Country: US (occurrence: US)
  Receive Date: 20220315
  Receipt Date: 20220315
  Transmission Date: 20220423
  Serious: Yes (Other)
  Sender: FDA-Public Use
  Company Number: US-SA-SAC20220310001200

PATIENT
  Age: 60 Year
  Sex: Female

DRUGS (1)
  1. ZANTAC [Suspect]
     Active Substance: RANITIDINE HYDROCHLORIDE
     Indication: Dyspepsia
     Dosage: UNK, QD
     Dates: start: 200101, end: 201801

REACTIONS (3)
  - Breast cancer stage I [Recovering/Resolving]
  - Renal cancer stage I [Recovering/Resolving]
  - Thyroid cancer stage I [Recovering/Resolving]

NARRATIVE: CASE EVENT DATE: 20050801
